FAERS Safety Report 22914590 (Version 2)
Quarter: 2023Q4

REPORT INFORMATION
  Report Type: Spontaneous
  Country: US (occurrence: US)
  Receive Date: 20230907
  Receipt Date: 20231026
  Transmission Date: 20240110
  Serious: No
  Sender: FDA-Public Use
  Company Number: US-BRISTOL-MYERS SQUIBB COMPANY-2023-126228

PATIENT
  Age: 42 Year
  Sex: Female

DRUGS (5)
  1. ZEPOSIA [Suspect]
     Active Substance: OZANIMOD HYDROCHLORIDE
     Indication: Multiple sclerosis
     Route: 048
     Dates: start: 20230515
  2. ZEPOSIA [Suspect]
     Active Substance: OZANIMOD HYDROCHLORIDE
     Route: 048
     Dates: start: 202306
  3. ZEPOSIA [Suspect]
     Active Substance: OZANIMOD HYDROCHLORIDE
     Route: 048
  4. GABAPENTIN [Concomitant]
     Active Substance: GABAPENTIN
     Indication: Product used for unknown indication
  5. PRILOSEC [Concomitant]
     Active Substance: OMEPRAZOLE MAGNESIUM
     Indication: Product used for unknown indication

REACTIONS (2)
  - Full blood count decreased [Unknown]
  - Lymphocyte count decreased [Recovered/Resolved]

NARRATIVE: CASE EVENT DATE: 20230822
